FAERS Safety Report 6115443-8 (Version None)
Quarter: 2009Q1

REPORT INFORMATION
  Report Type: 
  Country: None (occurrence: None)
  Receive Date: 20090313
  Receipt Date: 20090309
  Transmission Date: 20090719
  Serious: Yes (Other)
  Sender: FDA-Public Use
  Company Number: JP-AVENTIS-200910583JP

PATIENT
  Age: 54 Year
  Sex: Female
  Weight: 57.5 kg

DRUGS (2)
  1. AMARYL [Suspect]
     Indication: TYPE 2 DIABETES MELLITUS
     Route: 048
     Dates: start: 20081023, end: 20090224
  2. ORAL BLOOD GLUCOSE LOWERING DRUGS [Suspect]
     Indication: TYPE 2 DIABETES MELLITUS
     Dosage: DOSE: 1 TABLET
     Route: 048
     Dates: start: 20090121, end: 20090224

REACTIONS (1)
  - BREAST CANCER [None]
